FAERS Safety Report 4766319-X (Version None)
Quarter: 2005Q3

REPORT INFORMATION
  Report Type: 
  Country: None (occurrence: None)
  Receive Date: 20050912
  Receipt Date: 20050901
  Transmission Date: 20060218
  Serious: Yes (Death)
  Sender: FDA-Public Use
  Company Number: US-MERCK-0509USA00929

PATIENT
  Age: 56 Year
  Sex: Female
  Weight: 80 kg

DRUGS (10)
  1. VIOXX [Suspect]
     Indication: RHEUMATOID ARTHRITIS
     Route: 048
     Dates: start: 20010701, end: 20030101
  2. VIOXX [Suspect]
     Route: 048
     Dates: start: 20010701, end: 20030101
  3. PREMARIN [Concomitant]
     Indication: HYSTERECTOMY
     Route: 065
     Dates: start: 19720101, end: 20030121
  4. PREMARIN [Concomitant]
     Indication: HORMONE REPLACEMENT THERAPY
     Route: 065
     Dates: start: 19720101, end: 20030121
  5. ADVIL [Concomitant]
     Indication: PAIN
     Route: 065
     Dates: end: 20030121
  6. MOTRIN [Concomitant]
     Indication: PAIN
     Route: 065
     Dates: end: 20030121
  7. TYLENOL [Concomitant]
     Indication: PAIN
     Route: 065
     Dates: end: 20030121
  8. METHOTREXATE [Concomitant]
     Indication: ARTHRITIS
     Route: 065
     Dates: start: 19950101, end: 20030121
  9. INSULIN [Concomitant]
     Indication: DIABETES MELLITUS
     Route: 065
  10. ALEVE [Concomitant]
     Indication: PAIN
     Route: 065
     Dates: end: 20030121

REACTIONS (1)
  - DEATH [None]
